FAERS Safety Report 13543901 (Version 1)
Quarter: 2017Q2

REPORT INFORMATION
  Report Type: Spontaneous
  Country: DE (occurrence: DE)
  Receive Date: 20170515
  Receipt Date: 20170515
  Transmission Date: 20170830
  Serious: No
  Sender: FDA-Public Use
  Company Number: DE-LUPIN PHARMACEUTICALS INC.-2017-00645

PATIENT
  Age: 36 Year
  Sex: Male

DRUGS (3)
  1. PAROXETIN-HORMOSAN [Suspect]
     Active Substance: PAROXETINE HYDROCHLORIDE
     Indication: PANIC ATTACK
  2. PAROXETIN-HORMOSAN [Suspect]
     Active Substance: PAROXETINE HYDROCHLORIDE
     Indication: ANXIETY DISORDER
     Dosage: 9 DF,QD,
     Route: 048
     Dates: start: 20170208
  3. PAROXETIN-HORMOSAN [Suspect]
     Active Substance: PAROXETINE HYDROCHLORIDE
     Indication: ILLNESS ANXIETY DISORDER

REACTIONS (2)
  - Dizziness [Not Recovered/Not Resolved]
  - Nausea [Recovering/Resolving]

NARRATIVE: CASE EVENT DATE: 20170208
